FAERS Safety Report 4429465-6 (Version None)
Quarter: 2004Q3

REPORT INFORMATION
  Report Type: 
  Country: None (occurrence: None)
  Receive Date: 20040817
  Receipt Date: 20040817
  Transmission Date: 20050211
  Serious: No
  Sender: FDA-Public Use
  Company Number: None

PATIENT
  Sex: Male
  Weight: 23.6 kg

DRUGS (5)
  1. CEFTRIAXONE [Suspect]
     Indication: MENINGITIS
     Dosage: 1 GM IV Q12 HOURS
     Dates: start: 20040619
  2. CEFTRIAXONE [Suspect]
     Indication: MENINGITIS
     Dosage: 1 GM IV Q12 HOURS
     Dates: start: 20040621
  3. MOTRIN [Concomitant]
  4. TYLENOL [Concomitant]
  5. VANCOMYCIN [Concomitant]

REACTIONS (2)
  - FEELING ABNORMAL [None]
  - THROAT IRRITATION [None]
